FAERS Safety Report 4379244-3 (Version None)
Quarter: 2004Q2

REPORT INFORMATION
  Report Type: 
  Country: None (occurrence: None)
  Receive Date: 20040614
  Receipt Date: 20040601
  Transmission Date: 20050107
  Serious: Yes (Hospitalization, Other)
  Sender: FDA-Public Use
  Company Number: 2004025316

PATIENT
  Age: 41 Year
  Sex: Female

DRUGS (7)
  1. NEURONTIN [Suspect]
     Indication: BACK PAIN
     Dosage: ORAL
     Route: 048
     Dates: start: 20030101
  2. TRICYCLIC ANTIDEPRESSANTS (TRICYCLIC ANTIDEPRESSANTS) [Suspect]
     Indication: ILL-DEFINED DISORDER
  3. BENZODIAZEPINE DERIVATIVES (BENZODIAZEPINE DERIVATIVES) [Suspect]
     Indication: ILL-DEFINED DISORDER
  4. ALL OTHER THERAPEUTIC PRODUCTS (ALL OTHER THERAPEUTIC PRODUCTS) [Suspect]
     Indication: ILL-DEFINED DISORDER
  5. AMITRIPTYLINE HYDROCHLORIDE [Concomitant]
  6. CARISOPRODOL (CARISOPRODOL) [Concomitant]
  7. VICODIN [Concomitant]

REACTIONS (58)
  - ACUTE RESPIRATORY FAILURE [None]
  - AGITATION [None]
  - ALOPECIA [None]
  - AMENORRHOEA [None]
  - ANXIETY [None]
  - ARTHRALGIA [None]
  - ASTHENIA [None]
  - BACK INJURY [None]
  - BLOOD BICARBONATE INCREASED [None]
  - BLOOD BILIRUBIN INCREASED [None]
  - BLOOD CHLORIDE DECREASED [None]
  - BLOOD CREATINE PHOSPHOKINASE INCREASED [None]
  - BLOOD GLUCOSE INCREASED [None]
  - BLOOD POTASSIUM DECREASED [None]
  - BLOOD PRESSURE SYSTOLIC INCREASED [None]
  - BLOOD UREA DECREASED [None]
  - BOWEL SOUNDS ABNORMAL [None]
  - BURSITIS [None]
  - CALCINOSIS [None]
  - CIRCULATORY COLLAPSE [None]
  - COMA [None]
  - CONFUSIONAL STATE [None]
  - CRYING [None]
  - DECREASED APPETITE [None]
  - DEPRESSION [None]
  - DISORIENTATION [None]
  - DYSPHAGIA [None]
  - ELECTROCARDIOGRAM QT CORRECTED INTERVAL PROLONGED [None]
  - FIBROMYALGIA [None]
  - GOITRE [None]
  - HAEMATOCRIT DECREASED [None]
  - HYPERTENSION [None]
  - HYPOKALAEMIA [None]
  - HYPOTHYROIDISM [None]
  - INTENTIONAL OVERDOSE [None]
  - IRRITABILITY [None]
  - LOSS OF CONSCIOUSNESS [None]
  - LYMPHOCYTE COUNT DECREASED [None]
  - MEMORY IMPAIRMENT [None]
  - MULTIPLE ALLERGIES [None]
  - MYDRIASIS [None]
  - NEUROPATHIC PAIN [None]
  - NEUTROPHIL COUNT INCREASED [None]
  - OVARIAN ENLARGEMENT [None]
  - PCO2 DECREASED [None]
  - PHARYNGITIS [None]
  - PHARYNGOLARYNGEAL PAIN [None]
  - REFLEX SYMPATHETIC DYSTROPHY [None]
  - RESPIRATORY DEPRESSION [None]
  - STRESS SYMPTOMS [None]
  - SUICIDAL IDEATION [None]
  - TACHYCARDIA [None]
  - TENOSYNOVITIS [None]
  - THYROID NEOPLASM [None]
  - TRI-IODOTHYRONINE INCREASED [None]
  - URINE ABNORMALITY [None]
  - VOCAL CORD POLYP [None]
  - WHITE BLOOD CELL COUNT DECREASED [None]
